FAERS Safety Report 5941567-1 (Version None)
Quarter: 2008Q4

REPORT INFORMATION
  Report Type: 
  Country: None (occurrence: None)
  Receive Date: 20081105
  Receipt Date: 20081030
  Transmission Date: 20090506
  Serious: Yes (Other)
  Sender: FDA-Public Use
  Company Number: BR-WYE-H06636708

PATIENT
  Sex: Female
  Weight: 54 kg

DRUGS (1)
  1. ADVIL EXTRA ALIVIO [Suspect]
     Dosage: 1 CAPSULE X 1
     Route: 048
     Dates: start: 20081027, end: 20081027

REACTIONS (3)
  - EYE SWELLING [None]
  - FOREIGN BODY SENSATION IN EYES [None]
  - OCULAR HYPERAEMIA [None]
